FAERS Safety Report 15943419 (Version 19)
Quarter: 2022Q2

REPORT INFORMATION
  Report Type: Report from Study
  Country: FR (occurrence: FR)
  Receive Date: 20190210
  Receipt Date: 20220418
  Transmission Date: 20220720
  Serious: Yes (Death, Hospitalization, Other)
  Sender: FDA-Public Use
  Company Number: PHHY2019FR027815

PATIENT
  Age: 76 Year
  Sex: Male
  Weight: 81 kg

DRUGS (3)
  1. VOTRIENT [Suspect]
     Active Substance: PAZOPANIB HYDROCHLORIDE
     Indication: Renal cancer metastatic
     Dosage: 800 MG, QD
     Route: 048
     Dates: start: 20181130
  2. VOTRIENT [Suspect]
     Active Substance: PAZOPANIB HYDROCHLORIDE
     Dosage: 400 MG, QD
     Route: 048
     Dates: start: 20181130
  3. INSULIN NOS [Concomitant]
     Active Substance: INSULIN NOS
     Indication: Diabetes mellitus
     Dosage: UNK
     Route: 065

REACTIONS (16)
  - Cardiac failure [Fatal]
  - Pneumonia [Fatal]
  - Blood albumin decreased [Recovered/Resolved]
  - Blood alkaline phosphatase increased [Recovering/Resolving]
  - Azotaemia [Recovering/Resolving]
  - Lymphocyte count decreased [Recovering/Resolving]
  - Gamma-glutamyltransferase increased [Recovering/Resolving]
  - C-reactive protein increased [Recovering/Resolving]
  - Eosinophil count increased [Recovering/Resolving]
  - Starvation [Recovering/Resolving]
  - Protein deficiency [Unknown]
  - Decreased appetite [Recovered/Resolved]
  - Dyspnoea [Recovered/Resolved]
  - Xerosis [Not Recovered/Not Resolved]
  - Mucosal inflammation [Not Recovered/Not Resolved]
  - Asthenia [Recovered/Resolved]

NARRATIVE: CASE EVENT DATE: 20181213
